FAERS Safety Report 6213966-4 (Version None)
Quarter: 2009Q2

REPORT INFORMATION
  Report Type: 
  Country: None (occurrence: None)
  Receive Date: 20090604
  Receipt Date: 20090601
  Transmission Date: 20091009
  Serious: Yes (Other)
  Sender: FDA-Public Use
  Company Number: CN-JNJFOC-20090600525

PATIENT
  Sex: Female

DRUGS (3)
  1. CRAVIT [Suspect]
     Indication: ANTIBIOTIC PROPHYLAXIS
     Route: 041
  2. SEVOFLURANE [Suspect]
     Indication: GENERAL ANAESTHESIA
     Route: 055
  3. ROCURONIUM BROMIDE [Suspect]
     Indication: GENERAL ANAESTHESIA
     Route: 065

REACTIONS (2)
  - ANAPHYLACTIC SHOCK [None]
  - HEART RATE DECREASED [None]
